FAERS Safety Report 10626927 (Version 2)
Quarter: 2014Q4

REPORT INFORMATION
  Report Type: Spontaneous
  Country: US (occurrence: US)
  Receive Date: 20141204
  Receipt Date: 20141204
  Transmission Date: 20150529
  Serious: No
  Sender: FDA-Public Use
  Company Number: US-PFIZER INC-2014328682

PATIENT
  Age: 57 Year
  Sex: Male
  Weight: 91 kg

DRUGS (2)
  1. CHANTIX [Suspect]
     Active Substance: VARENICLINE TARTRATE
     Indication: SMOKING CESSATION THERAPY
     Dosage: UNK, AS DIRECTED
     Dates: start: 2014
  2. CIALIS [Concomitant]
     Active Substance: TADALAFIL
     Dosage: 5 MG, 1X/DAY

REACTIONS (2)
  - Gastrointestinal disorder [Unknown]
  - Tobacco user [Unknown]

NARRATIVE: CASE EVENT DATE: 2014
